FAERS Safety Report 8188336-2 (Version None)
Quarter: 2012Q1

REPORT INFORMATION
  Report Type: 
  Country: None (occurrence: None)
  Receive Date: 20120221
  Receipt Date: 20110412
  Transmission Date: 20120608
  Serious: Yes (Hospitalization)
  Sender: FDA-Public Use
  Company Number: PHHY2011US29441

PATIENT
  Age: 42 Year
  Sex: Female

DRUGS (1)
  1. TOBI [Suspect]
     Dosage: 300 MG/5ML BID, INHALATION
     Route: 055
     Dates: start: 20110317

REACTIONS (4)
  - PAIN [None]
  - BRONCHOSPASM [None]
  - DYSPNOEA [None]
  - PRURITUS [None]
